FAERS Safety Report 18054166 (Version 1)
Quarter: 2020Q3

REPORT INFORMATION
  Report Type: Spontaneous
  Country: NL (occurrence: NL)
  Receive Date: 20200722
  Receipt Date: 20200722
  Transmission Date: 20201103
  Serious: Yes (Hospitalization)
  Sender: FDA-Public Use
  Company Number: NVSC2020NL199049

PATIENT
  Age: 66 Year
  Sex: Female

DRUGS (4)
  1. ATEZOLIZUMAB. [Suspect]
     Active Substance: ATEZOLIZUMAB
     Indication: GASTROOESOPHAGEAL CANCER
     Dosage: 1200 MG, TIW (DATE OF MOST RECENT DOSE: 13 MAR 2020)
     Route: 042
     Dates: start: 20191220
  2. CAPECITABINE. [Suspect]
     Active Substance: CAPECITABINE
     Indication: GASTROOESOPHAGEAL CANCER
     Dosage: 1500 MG, QD (DATE OF MOST RECENT DOSE: 27 MAR 2020 )
     Route: 048
     Dates: start: 20200109
  3. OXALIPLATIN. [Suspect]
     Active Substance: OXALIPLATIN
     Indication: GASTROOESOPHAGEAL CANCER
     Dosage: 121 MG, TIW (DATE OF MOST RECENT DOSE: 13 MAR 2020 )
     Route: 042
     Dates: start: 20200109
  4. DOCETAXEL. [Suspect]
     Active Substance: DOCETAXEL
     Indication: GASTROOESOPHAGEAL CANCER
     Dosage: 90 MG, TIW (DATE OF LAST DOSE: 13 MAR 2020  )
     Route: 042
     Dates: start: 20200109

REACTIONS (1)
  - Gastric fistula [Recovered/Resolved]

NARRATIVE: CASE EVENT DATE: 20200520
